FAERS Safety Report 9407223 (Version 1)
Quarter: 2013Q3

REPORT INFORMATION
  Report Type: Spontaneous
  Country: FR (occurrence: None)
  Receive Date: 20130716
  Receipt Date: 20130716
  Transmission Date: 20140515
  Serious: Yes (Hospitalization)
  Sender: FDA-Public Use
  Company Number: SYM-2013-05976

PATIENT
  Age: 90 Year
  Sex: Female

DRUGS (7)
  1. TILDIEM [Suspect]
     Indication: ATRIAL FIBRILLATION
     Route: 048
     Dates: start: 20070730, end: 20130619
  2. HEMIGOXINE NATIVELLE [Suspect]
     Indication: ATRIAL FIBRILLATION
     Route: 048
     Dates: end: 20130619
  3. MIRTAZAPINE (MIRTAZAPINE) (MIRTAZAPINE) [Concomitant]
  4. PREVISCAN (FLUINDIONE) (FLUINDIONE) [Concomitant]
  5. RISPERDAL (RISERIDONE) (RISPERIDONE) [Concomitant]
  6. TAREG (VALSARTAN) (VALSARTAN) [Concomitant]
  7. UVEDOSE (COLECALCIFEROL) (COLECALCIFEROL) [Concomitant]

REACTIONS (12)
  - Fall [None]
  - Oedema peripheral [None]
  - Wound [None]
  - Bradycardia [None]
  - Blood pressure increased [None]
  - Heart sounds abnormal [None]
  - Cardiac murmur [None]
  - International normalised ratio increased [None]
  - Renal failure acute [None]
  - Escherichia test positive [None]
  - Dehydration [None]
  - Dementia [None]
